FAERS Safety Report 22337929 (Version 1)
Quarter: 2023Q2

REPORT INFORMATION
  Report Type: Spontaneous
  Country: US (occurrence: None)
  Receive Date: 20230518
  Receipt Date: 20230518
  Transmission Date: 20230722
  Serious: No
  Sender: FDA-Public Use
  Company Number: US-ROCHE-3316845

PATIENT
  Sex: Female

DRUGS (17)
  1. ACTEMRA [Suspect]
     Active Substance: TOCILIZUMAB
     Indication: Rheumatoid arthritis
     Route: 058
  2. ACTEMRA [Suspect]
     Active Substance: TOCILIZUMAB
  3. AMIODARONE [Concomitant]
     Active Substance: AMIODARONE
  4. AZATHIOPRINE [Concomitant]
     Active Substance: AZATHIOPRINE
  5. CARVEDILOL [Concomitant]
     Active Substance: CARVEDILOL
  6. CLONIDINE HYDROCHLORIDE [Concomitant]
     Active Substance: CLONIDINE HYDROCHLORIDE
  7. ELIQUIS [Concomitant]
     Active Substance: APIXABAN
  8. ENTRESTO [Concomitant]
     Active Substance: SACUBITRIL\VALSARTAN
  9. EZETIMIBE [Concomitant]
     Active Substance: EZETIMIBE
  10. GLIMEPIRIDE [Concomitant]
     Active Substance: GLIMEPIRIDE
  11. HYDRALAZINE [Concomitant]
     Active Substance: HYDRALAZINE HYDROCHLORIDE
  12. LEVOTHYROXINE [Concomitant]
     Active Substance: LEVOTHYROXINE
  13. METOPROLOL [Concomitant]
     Active Substance: METOPROLOL
  14. NIFEDIPINE [Concomitant]
     Active Substance: NIFEDIPINE
  15. SPIRONOLACTONE [Concomitant]
     Active Substance: SPIRONOLACTONE
  16. TORSEMIDE [Concomitant]
     Active Substance: TORSEMIDE
  17. VENLAFAXINE [Concomitant]
     Active Substance: VENLAFAXINE HYDROCHLORIDE

REACTIONS (2)
  - Blood pressure increased [Unknown]
  - Liver function test increased [Unknown]
